FAERS Safety Report 5486518-1 (Version None)
Quarter: 2007Q3

REPORT INFORMATION
  Report Type: 
  Country: None (occurrence: None)
  Receive Date: 20070919
  Receipt Date: 20070709
  Transmission Date: 20080115
  Serious: No
  Sender: FDA-Public Use
  Company Number: 2007RL000307

PATIENT
  Sex: Male

DRUGS (1)
  1. OMACOR [Suspect]
     Indication: HIGH DENSITY LIPOPROTEIN DECREASED
     Dosage: 1 GM; ;PO
     Route: 048
     Dates: start: 20070306, end: 20070101

REACTIONS (3)
  - OFF LABEL USE [None]
  - POLLAKIURIA [None]
  - WEIGHT DECREASED [None]
